FAERS Safety Report 9823652 (Version 2)
Quarter: 2014Q1

REPORT INFORMATION
  Report Type: Spontaneous
  Country: US (occurrence: US)
  Receive Date: 20140116
  Receipt Date: 20140116
  Transmission Date: 20141002
  Serious: No
  Sender: FDA-Public Use
  Company Number: US-GILEAD-2011-0037519

PATIENT
  Age: 53 Year
  Sex: Female

DRUGS (7)
  1. LETAIRIS [Suspect]
     Indication: PULMONARY HYPERTENSION
     Route: 048
     Dates: start: 20071017
  2. LETAIRIS [Suspect]
     Indication: HEART DISEASE CONGENITAL
  3. FENTANYL [Concomitant]
  4. VERSED [Concomitant]
  5. CLONAZEPAM [Concomitant]
  6. MELATONIN [Concomitant]
  7. DOXEPIN [Concomitant]

REACTIONS (1)
  - Fall [Recovered/Resolved]
